FAERS Safety Report 23544042 (Version 1)
Quarter: 2024Q1

REPORT INFORMATION
  Report Type: Spontaneous
  Country: CN (occurrence: CN)
  Receive Date: 20240220
  Receipt Date: 20240220
  Transmission Date: 20240410
  Serious: Yes (Life-Threatening, Hospitalization)
  Sender: FDA-Public Use
  Company Number: CN-BAYER-2024A026746

PATIENT
  Age: 44 Year
  Sex: Male
  Weight: 81 kg

DRUGS (1)
  1. ULTRAVIST [Suspect]
     Active Substance: IOPROMIDE
     Indication: Computerised tomogram
     Dosage: 80 ML, ONCE
     Route: 042
     Dates: start: 20240216, end: 20240216

REACTIONS (7)
  - Anaphylactic shock [Recovering/Resolving]
  - Rash erythematous [None]
  - Pulse absent [None]
  - Blood pressure decreased [Recovered/Resolved]
  - Dyspnoea [None]
  - Tremor [None]
  - Temperature intolerance [None]

NARRATIVE: CASE EVENT DATE: 20240216
